FAERS Safety Report 22650584 (Version 1)
Quarter: 2023Q2

REPORT INFORMATION
  Report Type: Spontaneous
  Country: US (occurrence: US)
  Receive Date: 20230628
  Receipt Date: 20230628
  Transmission Date: 20230721
  Serious: No
  Sender: FDA-Public Use
  Company Number: US-ALXN-A202308379

PATIENT
  Age: 50 Year
  Sex: Male

DRUGS (2)
  1. SOLIRIS [Suspect]
     Active Substance: ECULIZUMAB
     Indication: Haemolytic uraemic syndrome
     Dosage: 1200 MG, Q2W
     Route: 042
     Dates: start: 202203
  2. SOLIRIS [Suspect]
     Active Substance: ECULIZUMAB
     Indication: Off label use

REACTIONS (2)
  - Gastric infection [Unknown]
  - Off label use [Unknown]

NARRATIVE: CASE EVENT DATE: 20230621
